FAERS Safety Report 17808278 (Version 1)
Quarter: 2020Q2

REPORT INFORMATION
  Report Type: Spontaneous
  Country: US (occurrence: US)
  Receive Date: 20200520
  Receipt Date: 20200520
  Transmission Date: 20200714
  Serious: Yes (Other)
  Sender: FDA-Public Use
  Company Number: US-SA-2020SA129136

PATIENT
  Sex: Female

DRUGS (1)
  1. ZANTAC [Suspect]
     Active Substance: RANITIDINE HYDROCHLORIDE
     Dosage: FOUR-SIX TIMES A WEEK
     Dates: start: 2000

REACTIONS (3)
  - Injury [Unknown]
  - Pancreatic carcinoma [Unknown]
  - Anxiety [Unknown]

NARRATIVE: CASE EVENT DATE: 20170801
